FAERS Safety Report 12581296 (Version 3)
Quarter: 2016Q4

REPORT INFORMATION
  Report Type: Spontaneous
  Country: US (occurrence: US)
  Receive Date: 20160721
  Receipt Date: 20161222
  Transmission Date: 20170207
  Serious: Yes (Hospitalization)
  Sender: FDA-Public Use
  Company Number: US-ACTELION-A-NJ2016-139411

PATIENT
  Age: 36 Year
  Sex: Female

DRUGS (2)
  1. VELETRI [Suspect]
     Active Substance: EPOPROSTENOL
     Dosage: UNK
     Route: 042
  2. VELETRI [Suspect]
     Active Substance: EPOPROSTENOL
     Indication: PULMONARY ARTERIAL HYPERTENSION
     Dosage: 22.25 NG/KG, PER MIN
     Route: 042
     Dates: start: 20130619

REACTIONS (3)
  - Chest pain [Unknown]
  - Pulmonary arterial hypertension [Unknown]
  - Blood calcium decreased [Unknown]
